FAERS Safety Report 8048103-7 (Version None)
Quarter: 2012Q1

REPORT INFORMATION
  Report Type: 
  Country: None (occurrence: None)
  Receive Date: 20120112
  Receipt Date: 20120112
  Transmission Date: 20120608
  Serious: Yes (Hospitalization)
  Sender: FDA-Public Use
  Company Number: None

PATIENT
  Sex: Male
  Weight: 77.3 kg

DRUGS (2)
  1. PROPAFENONE HCL [Suspect]
     Indication: ATRIAL FIBRILLATION
     Dosage: 300MG 3 TIMES DAILY ORAL
     Route: 048
  2. KETOCONAZOLE [Suspect]
     Indication: PROSTATE CANCER
     Dosage: 200MG 3TIMES DAILY ORAL
     Route: 048
     Dates: start: 20111222

REACTIONS (5)
  - FALL [None]
  - DYSKINESIA [None]
  - TREMOR [None]
  - TRANSIENT ISCHAEMIC ATTACK [None]
  - ELECTROLYTE IMBALANCE [None]
